FAERS Safety Report 9231297 (Version 5)
Quarter: 2013Q2

REPORT INFORMATION
  Report Type: Spontaneous
  Country: US (occurrence: US)
  Receive Date: 20130415
  Receipt Date: 20130627
  Transmission Date: 20140414
  Serious: Yes (Life-Threatening, Hospitalization, Other)
  Sender: FDA-Public Use
  Company Number: US-TEVA-398207USA

PATIENT
  Age: 30 Year
  Sex: Female
  Weight: 78.09 kg

DRUGS (1)
  1. PARAGARD 380A [Suspect]
     Indication: CONTRACEPTION
     Route: 015
     Dates: start: 20110321, end: 20130307

REACTIONS (15)
  - Salpingectomy [Not Recovered/Not Resolved]
  - Metrorrhagia [Recovered/Resolved]
  - Hyperhidrosis [Recovered/Resolved]
  - Abdominal pain lower [Recovered/Resolved]
  - Appendicitis perforated [Recovered/Resolved]
  - Ectopic pregnancy [Recovered/Resolved]
  - Vaginal haemorrhage [Unknown]
  - Ruptured ectopic pregnancy [Recovered/Resolved]
  - Emergency care [Not Recovered/Not Resolved]
  - Infertility [Not Recovered/Not Resolved]
  - Insomnia [Not Recovered/Not Resolved]
  - Nightmare [Not Recovered/Not Resolved]
  - Anxiety [Not Recovered/Not Resolved]
  - Emotional distress [Not Recovered/Not Resolved]
  - Drug ineffective [Unknown]
